FAERS Safety Report 5659495-8 (Version None)
Quarter: 2008Q1

REPORT INFORMATION
  Report Type: 
  Country: None (occurrence: None)
  Receive Date: 20080311
  Receipt Date: 20080306
  Transmission Date: 20080703
  Serious: Yes (Other)
  Sender: FDA-Public Use
  Company Number: PHNU2006DE02646

PATIENT
  Age: 80 Year
  Sex: Female
  Weight: 54 kg

DRUGS (5)
  1. LAMISIL [Suspect]
     Indication: ONYCHOMYCOSIS
     Dosage: UNK, UNK
     Route: 061
     Dates: start: 20060503
  2. VITAMIN B COMPLEX CAP [Concomitant]
     Indication: ANOSMIA
     Dosage: UNK, UNK
  3. OMEP [Concomitant]
     Dosage: 2 TABLETS/DAY
     Route: 048
  4. TRI-THIAZID [Concomitant]
     Dosage: 1 TABLET/DAY, IN THE MORNING
     Route: 048
  5. SIMVASTATIN [Concomitant]
     Dosage: 1 TABLET/DAY, IN THE EVENING

REACTIONS (4)
  - AGEUSIA [None]
  - BLADDER DISORDER [None]
  - DRUG INEFFECTIVE [None]
  - HYPOSMIA [None]
